FAERS Safety Report 9281537 (Version 1)
Quarter: 2013Q2

REPORT INFORMATION
  Report Type: Spontaneous
  Country: US (occurrence: US)
  Receive Date: 20130509
  Receipt Date: 20130509
  Transmission Date: 20140414
  Serious: No
  Sender: FDA-Public Use
  Company Number: US-ASTRAZENECA-2013SE29897

PATIENT
  Age: 70 Year
  Sex: Male

DRUGS (18)
  1. SYMBICORT [Suspect]
     Indication: CHRONIC OBSTRUCTIVE PULMONARY DISEASE
     Dosage: 2 PUFFS, 2 TIMES IN 1 DAY
     Route: 055
  2. METOPROLOL [Suspect]
     Indication: HYPERTENSION
     Route: 048
  3. NYSTATIN [Suspect]
     Indication: ORAL FUNGAL INFECTION
     Route: 048
  4. HUMIRA [Suspect]
     Indication: COLITIS ULCERATIVE
     Route: 065
     Dates: start: 20130124, end: 20130124
  5. HUMIRA [Suspect]
     Indication: COLITIS ULCERATIVE
     Route: 065
     Dates: start: 20130207, end: 20130207
  6. HUMIRA [Suspect]
     Indication: COLITIS ULCERATIVE
     Dosage: 40MG 1 IN 2 WEEK
     Route: 065
     Dates: start: 20130221
  7. SPIRIVA [Suspect]
     Indication: CHRONIC OBSTRUCTIVE PULMONARY DISEASE
     Route: 055
  8. PROAIR HFA [Suspect]
     Indication: CHRONIC OBSTRUCTIVE PULMONARY DISEASE
     Dosage: 2 PUFF, BID, AS REQUIRED
     Route: 055
  9. SIMVASTATIN [Concomitant]
     Indication: BLOOD CHOLESTEROL INCREASED
  10. PRANDIN [Concomitant]
     Indication: DIABETES MELLITUS
  11. VANCOMYCIN [Concomitant]
     Indication: CLOSTRIDIUM DIFFICILE INFECTION
  12. VANCOMYCIN [Concomitant]
     Indication: CLOSTRIDIUM DIFFICILE INFECTION
     Dates: start: 20130326
  13. AMLODIPINE [Concomitant]
     Indication: HYPERTENSION
  14. COLAZAL [Concomitant]
     Indication: COLITIS
  15. LOMOTIL [Concomitant]
     Indication: DIARRHOEA
  16. BENTYL [Concomitant]
  17. ZOLPIDEM TARTRATE [Concomitant]
     Indication: SLEEP DISORDER
  18. PREDNISONE [Concomitant]
     Dosage: DAILY TAPER FROM 40MG TO 5MG
     Dates: end: 20130316

REACTIONS (3)
  - Pneumonia [Unknown]
  - Oral fungal infection [Unknown]
  - Clostridium difficile infection [Unknown]
